FAERS Safety Report 4509534-2 (Version None)
Quarter: 2004Q4

REPORT INFORMATION
  Report Type: 
  Country: None (occurrence: None)
  Receive Date: 20041119
  Receipt Date: 20041111
  Transmission Date: 20050328
  Serious: No
  Sender: FDA-Public Use
  Company Number: HQWYE463615NOV04

PATIENT
  Age: 79 Year
  Sex: Male
  Weight: 204.3 kg

DRUGS (3)
  1. PRIMATENE MIST (EPINEPRHINE, AEROSOL) [Suspect]
     Indication: DYSPNOEA
     Dosage: 4 PUFFS EVERY 2 HOURS, INHALATION
     Route: 055
  2. UNSPECIFIED INSULIN (UNSPECIFIED INSULIN) [Concomitant]
  3. UNSPECIFIED DIURETIC (UNSPECIFIED DIURETIC) [Concomitant]

REACTIONS (4)
  - ASTHMA [None]
  - DRUG ABUSER [None]
  - OVERDOSE [None]
  - SELF-MEDICATION [None]
